FAERS Safety Report 7313488-3 (Version None)
Quarter: 2011Q1

REPORT INFORMATION
  Report Type: 
  Country: None (occurrence: None)
  Receive Date: 20110225
  Receipt Date: 20110215
  Transmission Date: 20110831
  Serious: No
  Sender: FDA-Public Use
  Company Number: US-PFIZER INC-2010151127

PATIENT
  Age: 87 Year
  Sex: Female

DRUGS (2)
  1. PROVERA [Suspect]
     Indication: MENOPAUSAL SYMPTOMS
  2. PREMARIN [Suspect]
     Indication: MENOPAUSAL SYMPTOMS
     Dosage: 1.25 MG, UNK

REACTIONS (3)
  - MEMORY IMPAIRMENT [None]
  - WEIGHT INCREASED [None]
  - FEELING ABNORMAL [None]
